FAERS Safety Report 9423419 (Version 1)
Quarter: 2013Q3

REPORT INFORMATION
  Report Type: Report from Study
  Country: ES (occurrence: ES)
  Receive Date: 20130726
  Receipt Date: 20130726
  Transmission Date: 20140515
  Serious: Yes (Other)
  Sender: FDA-Public Use
  Company Number: ES-VERTEX PHARMACEUTICALS INC-2013-008316

PATIENT
  Sex: 0

DRUGS (2)
  1. TELAPREVIR [Suspect]
     Indication: HEPATITIS C
     Dosage: TABLET
  2. UNSPECIFIED ANTIVIRAL MEDICATION [Interacting]
     Indication: ANTIVIRAL PROPHYLAXIS
     Dosage: DOSAGE FORM: UNSPECIFIED
     Route: 065

REACTIONS (17)
  - Haematotoxicity [Unknown]
  - Liver disorder [Unknown]
  - Mental disorder [Unknown]
  - Pancytopenia [Unknown]
  - Skin toxicity [Unknown]
  - Skin reaction [Unknown]
  - Rash [Unknown]
  - Anaemia [Unknown]
  - Adverse event [Unknown]
  - Drug interaction [Unknown]
  - Skin lesion [Unknown]
  - Drug intolerance [Unknown]
  - Aggression [Unknown]
  - Anorectal disorder [Unknown]
  - Hepatitis C [Unknown]
  - Treatment failure [Unknown]
  - Drug ineffective [Unknown]
